FAERS Safety Report 12539282 (Version 2)
Quarter: 2016Q3

REPORT INFORMATION
  Report Type: Spontaneous
  Country: GB (occurrence: GB)
  Receive Date: 20160708
  Receipt Date: 20160714
  Transmission Date: 20161109
  Serious: Yes (Other)
  Sender: FDA-Public Use
  Company Number: GB-009507513-1607GBR002317

PATIENT
  Age: 77 Year
  Sex: Female
  Weight: 68 kg

DRUGS (9)
  1. OMEPRAZOLE. [Concomitant]
     Active Substance: OMEPRAZOLE
     Dosage: 1 DF, QD
     Dates: start: 20160513, end: 20160610
  2. DORZOLAMIDE HYDROCHLORIDE. [Suspect]
     Active Substance: DORZOLAMIDE HYDROCHLORIDE
     Indication: PRODUCT USED FOR UNKNOWN INDICATION
     Dosage: UNK
     Route: 047
     Dates: start: 20160624
  3. CARBOXYMETHYLCELLULOSE SODIUM. [Concomitant]
     Active Substance: CARBOXYMETHYLCELLULOSE SODIUM
     Dosage: 1 GTT, 6 TIMES A DAY
     Route: 047
     Dates: start: 20151019, end: 20160504
  4. HYLO FORTE [Concomitant]
     Dosage: 6 GTT PER DAY
     Route: 047
     Dates: start: 20160504
  5. BRINZOLAMIDE [Concomitant]
     Active Substance: BRINZOLAMIDE
     Dosage: 1 GTT, BID
     Route: 047
     Dates: start: 20151019
  6. TRIMOVATE (CHLORTETRACYCLINE HYDROCHLORIDE (+) CLOBETASONE BUTYRATE (+ [Concomitant]
     Dosage: 1 DF, BID
     Dates: start: 20160607, end: 20160621
  7. NAPROXEN. [Concomitant]
     Active Substance: NAPROXEN
     Dosage: 1 DF, BID
     Dates: start: 20160513, end: 20160527
  8. TIMOLOL MALEATE. [Concomitant]
     Active Substance: TIMOLOL MALEATE
     Dosage: 1 GTT, QD
     Route: 047
     Dates: start: 20151019
  9. ACETAMINOPHEN AND CODEINE [Concomitant]
     Active Substance: ACETAMINOPHEN\CODEINE PHOSPHATE
     Dosage: UNK
     Dates: start: 20160513, end: 20160610

REACTIONS (4)
  - Drug hypersensitivity [Recovering/Resolving]
  - Eye pain [Unknown]
  - Erythema [Unknown]
  - Eye swelling [Unknown]

NARRATIVE: CASE EVENT DATE: 2016
